FAERS Safety Report 9794693 (Version 2)
Quarter: 2014Q1

REPORT INFORMATION
  Report Type: Spontaneous
  Country: US (occurrence: US)
  Receive Date: 20140102
  Receipt Date: 20140106
  Transmission Date: 20141002
  Serious: Yes (Other)
  Sender: FDA-Public Use
  Company Number: US-BAXTER-2013BAX052728

PATIENT
  Age: 42 Year
  Sex: Male

DRUGS (2)
  1. PLASMA-LYTE A [Suspect]
     Indication: HAIR TRANSPLANT
     Route: 061
     Dates: start: 20131125, end: 20131125
  2. CLINDAMYCIN [Suspect]
     Indication: INFECTION PROPHYLAXIS
     Route: 048
     Dates: start: 20131125, end: 20131129

REACTIONS (2)
  - Erythema [Recovered/Resolved]
  - Post procedural infection [Recovered/Resolved]
